FAERS Safety Report 9591903 (Version 2)
Quarter: 2013Q4

REPORT INFORMATION
  Report Type: Spontaneous
  Country: US (occurrence: US)
  Receive Date: 20131004
  Receipt Date: 20131004
  Transmission Date: 20140711
  Serious: No
  Sender: FDA-Public Use
  Company Number: US-AMGEN-USASP2012070877

PATIENT
  Age: 58 Year
  Sex: Female
  Weight: 80.73 kg

DRUGS (16)
  1. ENBREL [Suspect]
     Indication: PSORIATIC ARTHROPATHY
     Dosage: 25 MG, 2 TIMES/WK
     Route: 058
     Dates: start: 20090101
  2. ADIPEX                             /00131701/ [Concomitant]
     Dosage: 37.5 MG, 1 CAP BY MOUTH BEFORE NOON.
     Route: 048
  3. AMBIFED-G DM [Concomitant]
     Dosage: 30MG-20MG-400MG
  4. AZITHROMYCIN [Concomitant]
     Dosage: 250 MG, 2 TAB BY MOUTH DAILY
     Route: 048
  5. BENICAR [Concomitant]
     Dosage: 20 MG-12.G MG, 1 TABLET BY MOUTH, 30 TABLET TAKING DAILY
     Route: 048
  6. CITALOPRAM [Concomitant]
     Dosage: 40 MG, 1 TABLET BY MOUTH DAILY, 30 TABLET TAKING
     Route: 048
  7. CYCLOBENZAPRINE [Concomitant]
     Dosage: 10 MG, ONE TAB BY MOUTH TID, 90 TAB TAKING.
     Route: 048
  8. DELESTROGEN [Concomitant]
     Dosage: 10 MG/ML, 1CC MONTHLY PER DR.
  9. EFFEXOR [Concomitant]
     Dosage: 75 MG, 2 CAPS BY MOUTH DAILY
  10. FLUTICASONE [Concomitant]
     Dosage: 50 MUG, UNK, 1 SPRAY IN EACH NOSTRIL EVERY DAY 16ML
  11. HYDROCODONE/ACETAMINOPHEN          /00607101/ [Concomitant]
     Dosage: 10 MG-750 MG, TAKES 1 FOUR TIMES A DAY AS NEEDED FOR SEVERE PAIN
  12. LIDODERM [Concomitant]
     Dosage: 5 %, UNK, APPLY 12 HRS ON, 12 HRS OFF AS DIRECTED
  13. PRILOSEC                           /00661201/ [Concomitant]
     Dosage: 20 MG, QD, 1 CAP BY MOUTH TAKING DAILY
     Route: 048
  14. SINGULAIR [Concomitant]
     Dosage: 10 MG, BID, 1 BY MOUTH
     Route: 048
  15. ZOLPIDEM [Concomitant]
     Dosage: 12.5 MG, QD TAKES 1 TABLET BY MOUTH AT BED TIEM AS NEEDED
     Route: 048
  16. ZYRTEC [Concomitant]
     Dosage: 10 MG, QD
     Route: 048

REACTIONS (9)
  - Ear pain [Unknown]
  - Iron deficiency anaemia [Unknown]
  - Anxiety disorder [Unknown]
  - Nausea [Unknown]
  - Facial pain [Unknown]
  - Back pain [Unknown]
  - Sinusitis [Recovered/Resolved]
  - Bronchitis [Recovered/Resolved]
  - Nasopharyngitis [Recovered/Resolved]
